FAERS Safety Report 14259483 (Version 1)
Quarter: 2017Q4

REPORT INFORMATION
  Report Type: Spontaneous
  Country: US (occurrence: US)
  Receive Date: 20171207
  Receipt Date: 20171207
  Transmission Date: 20180321
  Serious: No
  Sender: FDA-Public Use
  Company Number: US-ASTRAZENECA-2017SF22671

PATIENT
  Sex: Female

DRUGS (1)
  1. SYMBICORT [Suspect]
     Active Substance: BUDESONIDE\FORMOTEROL FUMARATE DIHYDRATE
     Dosage: TAKE 2 PUFFS SYMBICORT AM, 2 PUFFS SYMBICORT PM,
     Route: 055

REACTIONS (3)
  - Product use issue [Unknown]
  - Cough [Unknown]
  - Off label use [Unknown]
